FAERS Safety Report 25285462 (Version 1)
Quarter: 2025Q2

REPORT INFORMATION
  Report Type: Spontaneous
  Country: PT (occurrence: PT)
  Receive Date: 20250509
  Receipt Date: 20250509
  Transmission Date: 20250716
  Serious: Yes (Other)
  Sender: AMNEAL
  Company Number: PT-AMNEAL PHARMACEUTICALS-2025-AMRX-01772

PATIENT
  Sex: Male

DRUGS (3)
  1. ONGENTYS [Suspect]
     Active Substance: OPICAPONE
     Indication: Parkinson^s disease
     Route: 065
  2. ONGENTYS [Suspect]
     Active Substance: OPICAPONE
     Route: 065
     Dates: start: 202409
  3. BENSERAZIDE HYDROCHLORIDE\LEVODOPA [Concomitant]
     Active Substance: BENSERAZIDE HYDROCHLORIDE\LEVODOPA
     Indication: Parkinson^s disease
     Route: 065

REACTIONS (7)
  - Seizure [Unknown]
  - Seizure [Unknown]
  - Asthenia [Unknown]
  - Eye movement disorder [Unknown]
  - Pain [Unknown]
  - Screaming [Unknown]
  - Muscle spasms [Unknown]

NARRATIVE: CASE EVENT DATE: 20240901
